FAERS Safety Report 19186577 (Version 4)
Quarter: 2022Q1

REPORT INFORMATION
  Report Type: Report from Study
  Country: NL (occurrence: NL)
  Receive Date: 20210428
  Receipt Date: 20220114
  Transmission Date: 20220423
  Serious: Yes (Hospitalization)
  Sender: FDA-Public Use
  Company Number: NL-ABBVIE-18S-114-2548125-00

PATIENT
  Sex: Male
  Weight: 90 kg

DRUGS (10)
  1. CARBIDOPA\LEVODOPA [Suspect]
     Active Substance: CARBIDOPA\LEVODOPA
     Indication: Parkinson^s disease
     Dosage: MD: 11.0, CD: 3.8, ED: 2.0
     Route: 050
     Dates: start: 20181023, end: 20181023
  2. CARBIDOPA\LEVODOPA [Suspect]
     Active Substance: CARBIDOPA\LEVODOPA
     Dosage: MD: 11.0ML, CD: 3.6ML, ED: 2.0ML?STOPPED NIGHT PUMP AND THE MORNING DOSE OF THE DAY PUMP
     Route: 050
  3. CARBIDOPA\LEVODOPA [Suspect]
     Active Substance: CARBIDOPA\LEVODOPA
     Dosage: MD: 11.0ML, CD: 3.6ML, ED: 2.0ML?SWITCHED OVER TO 16 HOURS THERAPY
     Route: 050
     Dates: start: 20181023
  4. CARBIDOPA\LEVODOPA [Suspect]
     Active Substance: CARBIDOPA\LEVODOPA
     Dosage: MD 9.2 CD 3.6 ED 2 END 1 CND 1.8
     Route: 050
  5. CARBIDOPA\LEVODOPA [Suspect]
     Active Substance: CARBIDOPA\LEVODOPA
     Dosage: MD 9.2 ML, CD 3.6 ML/H, ED 2.0 ML, CND 1.8 ML/H, END 1.0 ML
     Route: 050
  6. CARBIDOPA\LEVODOPA [Suspect]
     Active Substance: CARBIDOPA\LEVODOPA
     Dosage: MD: 9.2 ML CDD: 4.0 ML/H EDD: 2.0 ML, REMAINS AT 24 HOURS
     Route: 050
  7. CARBIDOPA\LEVODOPA [Suspect]
     Active Substance: CARBIDOPA\LEVODOPA
     Dosage: END 2.0 ML CND 3.6 ML/H
     Route: 050
  8. BENSERAZIDE HYDROCHLORIDE\LEVODOPA [Suspect]
     Active Substance: BENSERAZIDE HYDROCHLORIDE\LEVODOPA
     Indication: Product used for unknown indication
     Route: 065
  9. MOVICOLON [Concomitant]
     Active Substance: POLYETHYLENE GLYCOL 3350\POTASSIUM CHLORIDE\SODIUM BICARBONATE\SODIUM CHLORIDE
     Indication: Abnormal faeces
     Route: 065
  10. FUSIDIC ACID [Concomitant]
     Active Substance: FUSIDIC ACID
     Indication: Product used for unknown indication
     Route: 003

REACTIONS (58)
  - Hip arthroplasty [Unknown]
  - Intentional product misuse [Not Recovered/Not Resolved]
  - Medical device pain [Recovered/Resolved]
  - Stress [Unknown]
  - Osteoarthritis [Recovering/Resolving]
  - Arthralgia [Recovering/Resolving]
  - Back pain [Recovering/Resolving]
  - Device difficult to use [Not Recovered/Not Resolved]
  - Muscular weakness [Not Recovered/Not Resolved]
  - Disturbance in attention [Not Recovered/Not Resolved]
  - Nocturia [Unknown]
  - Restlessness [Not Recovered/Not Resolved]
  - Medical device site induration [Recovered/Resolved]
  - Amnesia [Not Recovered/Not Resolved]
  - Drug ineffective [Not Recovered/Not Resolved]
  - Feeling cold [Not Recovered/Not Resolved]
  - Musculoskeletal stiffness [Not Recovered/Not Resolved]
  - Gait disturbance [Not Recovered/Not Resolved]
  - Stoma site discharge [Recovered/Resolved]
  - Irregular sleep wake rhythm disorder [Recovering/Resolving]
  - Therapeutic product effect incomplete [Recovered/Resolved]
  - Unevaluable event [Recovered/Resolved]
  - Depression [Not Recovered/Not Resolved]
  - Stoma site infection [Recovered/Resolved]
  - Unevaluable event [Recovered/Resolved]
  - On and off phenomenon [Recovered/Resolved]
  - Freezing phenomenon [Not Recovered/Not Resolved]
  - Dyspepsia [Recovered/Resolved]
  - Stoma site discharge [Recovered/Resolved]
  - Stoma site pain [Recovered/Resolved]
  - Dyskinesia [Recovered/Resolved]
  - Somnolence [Not Recovered/Not Resolved]
  - Stoma site inflammation [Recovered/Resolved]
  - Stoma site discharge [Recovered/Resolved]
  - Dyskinesia [Not Recovered/Not Resolved]
  - Stoma site erythema [Recovered/Resolved]
  - Fatigue [Not Recovered/Not Resolved]
  - Mobility decreased [Not Recovered/Not Resolved]
  - Stoma site reaction [Recovered/Resolved]
  - Stoma site infection [Recovered/Resolved]
  - Mobility decreased [Recovered/Resolved]
  - Panic reaction [Recovered/Resolved]
  - Device issue [Unknown]
  - Device occlusion [Unknown]
  - Unevaluable event [Unknown]
  - Psychomotor hyperactivity [Not Recovered/Not Resolved]
  - Therapeutic response shortened [Unknown]
  - Impaired self-care [Unknown]
  - Decreased appetite [Recovered/Resolved]
  - Eating disorder [Not Recovered/Not Resolved]
  - Dysphagia [Not Recovered/Not Resolved]
  - Choking [Not Recovered/Not Resolved]
  - Abnormal dreams [Recovered/Resolved]
  - Abnormal behaviour [Not Recovered/Not Resolved]
  - Insomnia [Not Recovered/Not Resolved]
  - Middle insomnia [Not Recovered/Not Resolved]
  - Dyskinesia [Recovered/Resolved]
  - On and off phenomenon [Not Recovered/Not Resolved]

NARRATIVE: CASE EVENT DATE: 20180101
